FAERS Safety Report 19760433 (Version 1)
Quarter: 2021Q3

REPORT INFORMATION
  Report Type: Spontaneous
  Country: US (occurrence: US)
  Receive Date: 20210830
  Receipt Date: 20210830
  Transmission Date: 20211014
  Serious: No
  Sender: FDA-Public Use
  Company Number: US-TEVA-2021-US-1939742

PATIENT
  Sex: Male

DRUGS (1)
  1. MUPIROCIN. [Suspect]
     Active Substance: MUPIROCIN
     Indication: ARTHROPOD BITE
     Route: 061

REACTIONS (3)
  - Movement disorder [Unknown]
  - Off label use [Unknown]
  - Arthralgia [Not Recovered/Not Resolved]
